FAERS Safety Report 5872914-7 (Version None)
Quarter: 2008Q3

REPORT INFORMATION
  Report Type: 
  Country: None (occurrence: None)
  Receive Date: 20080903
  Receipt Date: 20080827
  Transmission Date: 20090109
  Serious: Yes (Other)
  Sender: FDA-Public Use
  Company Number: CHPA2008US14349

PATIENT
  Age: 8 Year
  Sex: Male

DRUGS (2)
  1. TRIAMINIC CHEST + NASAL CONGESTION (NCH) (GUAUFENESIN, PHENYLEPHRINE H [Suspect]
     Indication: NASAL CONGESTION
     Dosage: 2 TSP, ONCE/SINGLE, ORAL
     Route: 048
     Dates: start: 20080827, end: 20080827
  2. DEXTROMETHORPHAN HYDROBROMIDE [Suspect]
     Indication: COUGH
     Dosage: 2 TSP, ONCE/SINGLE, ORAL
     Route: 048
     Dates: start: 20080827, end: 20080827

REACTIONS (1)
  - BLOOD GLUCOSE INCREASED [None]
